FAERS Safety Report 8492396-9 (Version None)
Quarter: 2012Q2

REPORT INFORMATION
  Report Type: 
  Country: None (occurrence: None)
  Receive Date: 20120629
  Receipt Date: 20120629
  Transmission Date: 20120825
  Serious: Yes (Hospitalization)
  Sender: FDA-Public Use
  Company Number: None

PATIENT
  Age: 98 Year
  Sex: Male
  Weight: 72 kg

DRUGS (1)
  1. FUROSEMIDE [Suspect]
     Indication: OEDEMA PERIPHERAL
     Dosage: 40 MG  EVERY DAY   IV
     Route: 042
     Dates: start: 20120623, end: 20120626

REACTIONS (1)
  - RASH [None]
